FAERS Safety Report 6003054-4 (Version None)
Quarter: 2008Q4

REPORT INFORMATION
  Report Type: 
  Country: None (occurrence: None)
  Receive Date: 20081215
  Receipt Date: 20081203
  Transmission Date: 20090506
  Serious: Yes (Other)
  Sender: FDA-Public Use
  Company Number: US-PFIZER INC-2008096199

PATIENT
  Sex: Female
  Weight: 77.1 kg

DRUGS (9)
  1. XANAX [Suspect]
     Indication: MUSCLE TWITCHING
     Dosage: 0.25 MG, 2X/DAY
     Route: 048
     Dates: start: 20080701
  2. XANAX [Suspect]
     Indication: TIC
  3. XANAX [Suspect]
     Indication: TARDIVE DYSKINESIA
  4. NEXIUM [Concomitant]
     Dosage: UNK
  5. ATENOLOL [Concomitant]
     Dosage: UNK
  6. ACETYLSALICYLIC ACID [Concomitant]
     Dosage: UNK
  7. ASACOL [Concomitant]
     Dosage: UNK
  8. CALCIUM [Concomitant]
     Dosage: UNK
  9. ALL OTHER THERAPEUTIC PRODUCTS [Concomitant]
     Dosage: UNK

REACTIONS (12)
  - ACCIDENT AT WORK [None]
  - CONDITION AGGRAVATED [None]
  - CRYING [None]
  - EAR CONGESTION [None]
  - HEARING IMPAIRED [None]
  - HYPOAESTHESIA [None]
  - INCORRECT DOSE ADMINISTERED [None]
  - INSOMNIA [None]
  - LOWER LIMB FRACTURE [None]
  - PARAESTHESIA [None]
  - PSYCHOMOTOR HYPERACTIVITY [None]
  - TINNITUS [None]
